FAERS Safety Report 4989523-4 (Version None)
Quarter: 2006Q2

REPORT INFORMATION
  Report Type: 
  Country: None (occurrence: None)
  Receive Date: 20060426
  Receipt Date: 20060405
  Transmission Date: 20061013
  Serious: Yes (Hospitalization, Other)
  Sender: FDA-Public Use
  Company Number: US200601002420

PATIENT
  Age: 30 Month
  Sex: Female
  Weight: 7.3 kg

DRUGS (1)
  1. HUMATROPE [Suspect]
     Indication: GROWTH HORMONE DEFICIENCY

REACTIONS (4)
  - CONVULSION [None]
  - INJECTION SITE BRUISING [None]
  - INJECTION SITE SWELLING [None]
  - PHARMACEUTICAL PRODUCT COMPLAINT [None]
